FAERS Safety Report 5862951-0 (Version None)
Quarter: 2008Q3

REPORT INFORMATION
  Report Type: 
  Country: None (occurrence: None)
  Receive Date: 20080828
  Receipt Date: 20080822
  Transmission Date: 20090109
  Serious: Yes (Hospitalization)
  Sender: FDA-Public Use
  Company Number: A0744981A

PATIENT
  Age: 55 Year
  Sex: Male
  Weight: 77.3 kg

DRUGS (18)
  1. AVANDIA [Suspect]
     Dosage: 8MG PER DAY
     Route: 048
     Dates: start: 20040101, end: 20070530
  2. ACTOS [Concomitant]
  3. ADVAIR DISKUS 100/50 [Concomitant]
  4. AUGMENTIN '125' [Concomitant]
  5. CHLORHEXIDINE GLUCONATE [Concomitant]
  6. CRESTOR [Concomitant]
  7. COMBIVENT [Concomitant]
  8. FAMOTIDINE [Concomitant]
  9. INDOMETHACIN [Concomitant]
  10. PERIOGARD [Concomitant]
  11. PREDNISONE TAB [Concomitant]
  12. PROTONIX [Concomitant]
  13. REQUIP [Concomitant]
  14. VITAMIN TAB [Concomitant]
  15. TUSSIONEX [Concomitant]
  16. VIOXX [Concomitant]
  17. ZETIA [Concomitant]
  18. TRIAMTEREN + HYDROCHLOROTHIAZIDE [Concomitant]

REACTIONS (2)
  - CARDIAC FAILURE CONGESTIVE [None]
  - MYOCARDIAL INFARCTION [None]
